FAERS Safety Report 8771541 (Version 1)
Quarter: 2012Q4

REPORT INFORMATION
  Report Type: 
  Country: US (occurrence: US)
  Receive Date: 20120906
  Receipt Date: 20120906
  Transmission Date: 20130627
  Serious: Yes (Hospitalization)
  Sender: FDA-Public Use
  Company Number: US-JNJFOC-20120814478

PATIENT
  Age: 76 Year
  Sex: Male

DRUGS (4)
  1. XARELTO [Suspect]
     Indication: THROMBOSIS PROPHYLAXIS
     Route: 048
     Dates: start: 201208, end: 20120828
  2. XARELTO [Suspect]
     Indication: HIP ARTHROPLASTY
     Route: 048
     Dates: start: 201208, end: 20120828
  3. OTHER THERAPEUTIC MEDICATIONS [Concomitant]
     Indication: PAIN
  4. OTHER THERAPEUTIC MEDICATIONS [Concomitant]
     Indication: HYPERTENSION

REACTIONS (1)
  - Sputum discoloured [Recovered/Resolved]
